FAERS Safety Report 24363176 (Version 2)
Quarter: 2024Q4

REPORT INFORMATION
  Report Type: Spontaneous
  Country: US (occurrence: US)
  Receive Date: 20240925
  Receipt Date: 20241001
  Transmission Date: 20250115
  Serious: Yes (Hospitalization, Other)
  Sender: ELI LILLY AND CO
  Company Number: US-ELI_LILLY_AND_COMPANY-US202409010657

PATIENT
  Age: 63 Year
  Sex: Female
  Weight: 61.5 kg

DRUGS (35)
  1. VERZENIO [Suspect]
     Active Substance: ABEMACICLIB
     Indication: Glioblastoma
     Dosage: 150 MG, BID
     Route: 048
     Dates: start: 20190121, end: 20240911
  2. VANCOMYCIN [Suspect]
     Active Substance: VANCOMYCIN
     Indication: Clostridium difficile infection
     Dosage: UNK UNK, UNKNOWN
     Route: 048
  3. VANCOMYCIN [Suspect]
     Active Substance: VANCOMYCIN
     Dosage: 500 MG, QID
     Route: 048
  4. VANCOMYCIN [Suspect]
     Active Substance: VANCOMYCIN
     Dosage: 500 MG, QID
     Route: 048
     Dates: start: 20240914, end: 20240924
  5. CYANOCOBALAMIN [Concomitant]
     Active Substance: CYANOCOBALAMIN
     Indication: Product used for unknown indication
     Dosage: UNK UNK, UNKNOWN
     Route: 065
     Dates: start: 20240427
  6. VITAMIN C [Concomitant]
     Active Substance: ASCORBIC ACID
     Indication: Product used for unknown indication
     Dosage: 1000 MG, DAILY
     Route: 048
  7. VITAMIN C [Concomitant]
     Active Substance: ASCORBIC ACID
     Dosage: 2 DOSAGE FORM, DAILY
     Route: 048
  8. VITAMIN C [Concomitant]
     Active Substance: ASCORBIC ACID
     Dosage: 1000 MG, DAILY
     Route: 048
     Dates: start: 20240914
  9. AMITRIPTYLINE [Concomitant]
     Active Substance: AMITRIPTYLINE
     Indication: Product used for unknown indication
     Dosage: UNK UNK, UNKNOWN
     Route: 065
     Dates: start: 20210427
  10. BENZOYL PEROXIDE [Concomitant]
     Active Substance: BENZOYL PEROXIDE
     Indication: Product used for unknown indication
     Dosage: UNK UNK, UNKNOWN
     Route: 065
     Dates: start: 20230718
  11. VITAMIN D3 [Concomitant]
     Active Substance: CHOLECALCIFEROL
     Indication: Product used for unknown indication
     Dosage: UNK UNK, UNKNOWN
     Route: 065
     Dates: start: 20110511
  12. VITAMINS NOS [Concomitant]
     Active Substance: VITAMINS
     Indication: Product used for unknown indication
     Dosage: 1 DOSAGE FORM, DAILY
     Route: 048
  13. CALCIUM\VITAMIN D [Concomitant]
     Active Substance: CALCIUM\VITAMIN D
     Indication: Product used for unknown indication
     Dosage: 500 MG-200 IU, 2 TABS DAILY
     Route: 048
  14. CALCIUM\VITAMIN D [Concomitant]
     Active Substance: CALCIUM\VITAMIN D
     Dosage: 2 DOSAGE FORM, DAILY
     Route: 048
     Dates: start: 20240914
  15. MORPHINE [Concomitant]
     Active Substance: MORPHINE
     Indication: Product used for unknown indication
     Dosage: 2 MG, EVERY HOUR, PRN
     Route: 042
  16. MORPHINE [Concomitant]
     Active Substance: MORPHINE
     Dosage: 2 MG, EVERY HOUR, PRN SEVERE PAIN
     Route: 042
     Dates: start: 20240914
  17. SODIUM CHLORIDE [Concomitant]
     Active Substance: SODIUM CHLORIDE
     Indication: Product used for unknown indication
     Dosage: 10 ML, PRN, IV FLUSH, ON CALL
     Route: 042
  18. SODIUM CHLORIDE [Concomitant]
     Active Substance: SODIUM CHLORIDE
     Dosage: 10 ML, BID, IV FLUSH
     Route: 042
  19. REGLAN [Concomitant]
     Active Substance: METOCLOPRAMIDE HYDROCHLORIDE
     Indication: Product used for unknown indication
     Dosage: 10 MG, EVERY 6 HRS, PRN
     Route: 042
  20. SODIUM CHLORIDE [Concomitant]
     Active Substance: SODIUM CHLORIDE
     Indication: Product used for unknown indication
     Dosage: 0.9 %, 1000 ML, UNKNOWN
     Route: 042
  21. SODIUM CHLORIDE [Concomitant]
     Active Substance: SODIUM CHLORIDE
     Dosage: 10 ML, ON CALL, PRN
     Route: 042
     Dates: start: 20240914
  22. SODIUM CHLORIDE [Concomitant]
     Active Substance: SODIUM CHLORIDE
     Dosage: 10 ML, BID, ROUTINE
     Route: 042
     Dates: start: 20240914
  23. SODIUM CHLORIDE [Concomitant]
     Active Substance: SODIUM CHLORIDE
     Dosage: 0.9 UNK, UNKNOWN, 150 ML/HR, 6.7 HR, 62.6 KG
     Route: 042
     Dates: start: 20240914
  24. DICYCLOMINE HYDROCHLORIDE [Concomitant]
     Active Substance: DICYCLOMINE HYDROCHLORIDE
     Indication: Product used for unknown indication
     Dosage: 10 MG, TID
     Route: 048
     Dates: start: 20240915
  25. POTASSIUM CHLORIDE [Concomitant]
     Active Substance: POTASSIUM CHLORIDE
     Indication: Product used for unknown indication
     Dosage: 20 MEQ, BID
     Route: 048
     Dates: start: 20240915
  26. IMODIUM A-D [Concomitant]
     Active Substance: LOPERAMIDE HYDROCHLORIDE
     Indication: Diarrhoea
     Dosage: UNK UNK, UNKNOWN
     Route: 065
     Dates: start: 20190406
  27. IMODIUM A-D [Concomitant]
     Active Substance: LOPERAMIDE HYDROCHLORIDE
     Dosage: 2 MG, DAILY, PRN
     Route: 048
  28. TYLENOL [Concomitant]
     Active Substance: ACETAMINOPHEN
     Indication: Pain
     Dosage: 650 MG, EVERY 4 HRS, PRN
     Route: 048
  29. TYLENOL [Concomitant]
     Active Substance: ACETAMINOPHEN
     Dosage: 325 MG, EVERY 4 HRS, PRN, 2 TABS
     Route: 048
  30. TYLENOL [Concomitant]
     Active Substance: ACETAMINOPHEN
     Dosage: 650 MG, EVERY 4 HRS, PRN
     Route: 048
     Dates: start: 20240914
  31. ONDANSETRON [Concomitant]
     Active Substance: ONDANSETRON
     Indication: Nausea
     Dosage: 4 MG, TID, PRN
     Route: 048
  32. ZOFRAN [Concomitant]
     Active Substance: ONDANSETRON HYDROCHLORIDE
     Indication: Nausea
     Dosage: 4 MG, EVERY 6 HRS, PRN
     Route: 042
  33. ZOFRAN [Concomitant]
     Active Substance: ONDANSETRON HYDROCHLORIDE
     Indication: Vomiting
     Dosage: 4 MG, EVERY 6 HRS, PRN
     Route: 042
     Dates: start: 20240914
  34. PROCHLORPERAZINE [Concomitant]
     Active Substance: PROCHLORPERAZINE
     Indication: Nausea
     Dosage: 10 MG, EVERY 4 HRS, PRN
     Route: 042
     Dates: start: 20240915
  35. PROCHLORPERAZINE [Concomitant]
     Active Substance: PROCHLORPERAZINE
     Indication: Vomiting

REACTIONS (27)
  - Acute kidney injury [Recovering/Resolving]
  - Oedema peripheral [Unknown]
  - Pleural effusion [Unknown]
  - Ascites [Unknown]
  - Hypoalbuminaemia [Unknown]
  - Hypomagnesaemia [Unknown]
  - Clostridium difficile infection [Unknown]
  - Dehydration [Unknown]
  - Diarrhoea [Unknown]
  - Off label use [Unknown]
  - Blood alkaline phosphatase increased [Unknown]
  - International normalised ratio increased [Unknown]
  - Prothrombin time prolonged [Unknown]
  - Protein total increased [Unknown]
  - Mean cell haemoglobin increased [Unknown]
  - Mean cell haemoglobin concentration increased [Unknown]
  - Red cell distribution width increased [Unknown]
  - Lymphocyte percentage decreased [Unknown]
  - Immature granulocyte count increased [Unknown]
  - Immature granulocyte percentage increased [Unknown]
  - Blood potassium decreased [Unknown]
  - Blood calcium decreased [Unknown]
  - Albumin globulin ratio decreased [Unknown]
  - Ammonia decreased [Unknown]
  - Aspartate aminotransferase increased [Unknown]
  - Haematocrit decreased [Unknown]
  - Haemoglobin decreased [Unknown]

NARRATIVE: CASE EVENT DATE: 20240701
